FAERS Safety Report 15694781 (Version 2)
Quarter: 2018Q4

REPORT INFORMATION
  Report Type: Report from Study
  Country: None (occurrence: JP)
  Receive Date: 20181206
  Receipt Date: 20181219
  Transmission Date: 20190205
  Serious: Yes (Hospitalization, Disabling)
  Sender: FDA-Public Use
  Company Number: JP-ABBVIE-18P-087-2581257-00

PATIENT
  Age: 62 Year
  Sex: Male
  Weight: 51 kg

DRUGS (10)
  1. LEUPLIN [Suspect]
     Active Substance: LEUPROLIDE ACETATE
     Indication: BULBOSPINAL MUSCULAR ATROPHY CONGENITAL
     Dosage: 11.25 MG, Q3MONTHS
     Route: 058
     Dates: start: 20180118, end: 20180927
  2. CARBOCISTEINE [Concomitant]
     Active Substance: CARBOCYSTEINE
     Indication: BRONCHITIS
     Dosage: 1500 MG, UNK
     Route: 048
     Dates: start: 20180425
  3. BEPOTASTINE BESILATE [Concomitant]
     Active Substance: BEPOTASTINE BESILATE
     Indication: RHINITIS ALLERGIC
     Dosage: 20 MG, UNK
     Route: 048
     Dates: start: 20180530
  4. PANAX GINSENG ROOT ZANTHOXYLUM PIPERITUM PERICARP ZINGIBER OFFICINAL [Concomitant]
     Indication: CONSTIPATION
     Dosage: 7.5 G, UNK
     Route: 048
     Dates: start: 20180611
  5. LINAGLIPTIN [Concomitant]
     Active Substance: LINAGLIPTIN
     Indication: DIABETES MELLITUS
     Dosage: 5 MG, UNK
     Route: 048
     Dates: start: 20180502
  6. RISPERIDONE. [Concomitant]
     Active Substance: RISPERIDONE
     Indication: DELIRIUM
     Dosage: 1 MG, UNK
     Route: 048
     Dates: start: 20180616
  7. CLOSTRIDIUM BUTYRICUM [Concomitant]
     Active Substance: CLOSTRIDIUM BUTYRICUM SPORES STRAIN M-55
     Indication: ENTEROCOLITIS
     Dosage: 6 G, UNK
     Route: 048
     Dates: start: 20180427
  8. LANSOPRAZOLE. [Concomitant]
     Active Substance: LANSOPRAZOLE
     Indication: PROPHYLAXIS AGAINST GASTROINTESTINAL ULCER
     Dosage: 15 MG, UNK
     Route: 065
     Dates: start: 20180425
  9. AMBROXOL HYDROCHLORIDE [Concomitant]
     Active Substance: AMBROXOL HYDROCHLORIDE
     Indication: BRONCHITIS
     Dosage: 45 MG, UNK
     Route: 048
     Dates: start: 20180426
  10. APIXABAN [Concomitant]
     Active Substance: APIXABAN
     Indication: ATRIAL FIBRILLATION
     Dosage: 10 MG, UNK
     Route: 048
     Dates: start: 20180823

REACTIONS (1)
  - Vocal cord paralysis [Not Recovered/Not Resolved]

NARRATIVE: CASE EVENT DATE: 20180407
